FAERS Safety Report 10201244 (Version 2)
Quarter: 2014Q2

REPORT INFORMATION
  Report Type: Spontaneous
  Country: DE (occurrence: MY)
  Receive Date: 20140528
  Receipt Date: 20140616
  Transmission Date: 20141212
  Serious: Yes (Other)
  Sender: FDA-Public Use
  Company Number: MY-FRI-1000067642

PATIENT
  Age: 78 Year
  Sex: Female

DRUGS (4)
  1. MEMANTINE [Suspect]
     Dosage: 20 MG
     Dates: start: 201402
  2. QUETIAPINE [Concomitant]
     Dosage: 50 MG ONCE EVERY NIGHT
     Dates: start: 201403
  3. CLONAZEPAM [Concomitant]
  4. AMLODIPINE [Concomitant]
     Dosage: 5 MG

REACTIONS (2)
  - Urinary retention [Unknown]
  - Pollakiuria [Unknown]
